FAERS Safety Report 4988773-0 (Version None)
Quarter: 2006Q2

REPORT INFORMATION
  Report Type: 
  Country: None (occurrence: None)
  Receive Date: 20060502
  Receipt Date: 20060420
  Transmission Date: 20061013
  Serious: Yes (Death)
  Sender: FDA-Public Use
  Company Number: NO-MERCK-0604NOR00008

PATIENT
  Age: 46 Year
  Sex: Male

DRUGS (5)
  1. DECADRON [Suspect]
     Indication: IMMUNOSUPPRESSION
     Route: 065
  2. AZATHIOPRINE [Suspect]
     Indication: IMMUNOSUPPRESSION
     Route: 065
  3. CYCLOPHOSPHAMIDE [Suspect]
     Indication: IMMUNOSUPPRESSION
     Route: 065
  4. METHOTREXATE [Suspect]
     Indication: IMMUNOSUPPRESSION
     Route: 048
  5. [THERAPY UNSPECIFIED] [Suspect]
     Indication: IMMUNOSUPPRESSION
     Route: 065

REACTIONS (22)
  - BASAL CELL CARCINOMA [None]
  - BLADDER CANCER [None]
  - BRAIN DAMAGE [None]
  - CEREBRAL SARCOIDOSIS [None]
  - CYSTITIS HAEMORRHAGIC [None]
  - DYSPNOEA [None]
  - GENERAL PHYSICAL HEALTH DETERIORATION [None]
  - HAEMOPTYSIS [None]
  - HEPATIC ENZYME INCREASED [None]
  - HYDRONEPHROSIS [None]
  - KAPOSI'S SARCOMA [None]
  - LUNG INFECTION [None]
  - LUNG INFILTRATION [None]
  - MALIGNANT NEOPLASM PROGRESSION [None]
  - NASAL CONGESTION [None]
  - NEOPLASM MALIGNANT [None]
  - OSTEONECROSIS [None]
  - POLYARTHRITIS [None]
  - POOR PERIPHERAL CIRCULATION [None]
  - SINUSITIS [None]
  - SQUAMOUS CELL CARCINOMA [None]
  - URINARY TRACT INFECTION [None]
